FAERS Safety Report 25170066 (Version 2)
Quarter: 2025Q3

REPORT INFORMATION
  Report Type: Report from Study
  Country: CA (occurrence: CA)
  Receive Date: 20250407
  Receipt Date: 20250717
  Transmission Date: 20251021
  Serious: Yes (Hospitalization, Other)
  Sender: ABBVIE
  Company Number: CA-ABBVIE-6206067

PATIENT
  Age: 74 Year
  Sex: Male

DRUGS (1)
  1. LUPRON [Suspect]
     Active Substance: LEUPROLIDE ACETATE
     Indication: Prostate cancer
     Dosage: FORM STRENGTH: 22.5 MG
     Route: 030
     Dates: start: 20250127

REACTIONS (4)
  - Device dislocation [Unknown]
  - Infection [Recovered/Resolved]
  - Sepsis [Recovered/Resolved]
  - Ureteral stent insertion [Unknown]

NARRATIVE: CASE EVENT DATE: 20250101
